FAERS Safety Report 8578069 (Version 3)
Quarter: 2013Q1

REPORT INFORMATION
  Report Type: Spontaneous
  Country: GB (occurrence: GB)
  Receive Date: 20120524
  Receipt Date: 20130326
  Transmission Date: 20140127
  Serious: Yes (Death, Hospitalization)
  Sender: FDA-Public Use
  Company Number: GB-NOVOPROD-351490

PATIENT
  Age: 66 Year
  Sex: Female

DRUGS (29)
  1. VAGIFEM [Suspect]
     Indication: ATROPHIC VULVOVAGINITIS
     Dosage: 25 ?G, UNK
     Route: 067
     Dates: start: 20120217
  2. VAGIFEM [Suspect]
     Indication: VULVOVAGINAL DRYNESS
  3. CLOBETASOL [Suspect]
     Indication: ATROPHIC VULVOVAGINITIS
     Dosage: UNK UNK, BID
     Route: 061
     Dates: start: 20120217
  4. TRIMETHOPRIM [Suspect]
     Indication: ATROPHIC VULVOVAGINITIS
     Dosage: 200 MG, BID
     Dates: start: 20120217
  5. RANITIDINE [Concomitant]
     Dosage: 150 MG, BID
  6. SALBUTAMOL [Concomitant]
     Indication: ASTHMA
     Dosage: UNK
     Dates: end: 20120313
  7. FLUOXETINE [Concomitant]
     Indication: FIBROMYALGIA
     Dosage: 20 MG, QD
  8. FLUOXETINE [Concomitant]
     Dosage: 20 MG, BID
  9. SIMVASTATIN [Concomitant]
     Indication: TYPE 2 DIABETES MELLITUS
     Dosage: 20 MG, QD
  10. SIMVASTATIN [Concomitant]
     Dosage: 40 MG, QD
  11. BENDROFLUMETHIAZIDE [Concomitant]
     Indication: ESSENTIAL HYPERTENSION
     Dosage: 2.5 MG, QD
  12. AMLODIPINE [Concomitant]
     Indication: ESSENTIAL HYPERTENSION
     Dosage: 10 MG, QD
     Dates: end: 20091001
  13. LEVOTHYROXINE SODIUM [Concomitant]
     Indication: HYPOTHYROIDISM
     Dosage: 75 ?G, QD
  14. CO-CODAMOL [Concomitant]
     Dosage: UNK
  15. METFORMIN [Concomitant]
     Indication: TYPE 2 DIABETES MELLITUS
     Dosage: 850 MG, TID
  16. RAMIPRIL [Concomitant]
     Indication: MYOCARDIAL ISCHAEMIA
     Dosage: 5 MG, QD
     Dates: end: 20110607
  17. RAMIPRIL [Concomitant]
     Indication: ESSENTIAL HYPERTENSION
     Dosage: UNK
  18. NEBIVOLOL [Concomitant]
     Indication: MYOCARDIAL ISCHAEMIA
     Dosage: 2.5 MG, QD
     Dates: end: 20091001
  19. ASPIRIN [Concomitant]
     Indication: ANGIOGRAM
     Dosage: 75 MG, QD
  20. SALMETEROL/FLUTICASONPROPIONAAT [Concomitant]
     Indication: ASTHMA
     Route: 055
  21. SALMETEROL [Concomitant]
     Indication: ASTHMA
  22. AMITRIPTYLINE [Concomitant]
     Indication: OSTEOARTHRITIS
     Dosage: 10 MG, QD
     Dates: end: 20101101
  23. AMITRIPTYLINE [Concomitant]
     Dosage: 40 MG, UNK
  24. MEBEVERINE [Concomitant]
     Indication: TYPE 2 DIABETES MELLITUS
     Dosage: 135 MG, TID
  25. GLICLAZIDE [Concomitant]
     Indication: TYPE 2 DIABETES MELLITUS
     Dosage: 40 MG, QD
     Dates: end: 20120313
  26. CLENIL MODULITE [Concomitant]
  27. LEVOTHYROXINE [Concomitant]
     Indication: HYPOTHYROIDISM
  28. GLYCERYL TRINITRATE [Concomitant]
     Indication: MYOCARDIAL ISCHAEMIA
     Dosage: UNK
  29. MANNITOL [Concomitant]

REACTIONS (24)
  - Cerebral haemorrhage [Fatal]
  - Essential hypertension [Fatal]
  - Hypertensive crisis [Fatal]
  - Babinski reflex test [Unknown]
  - Defaecation urgency [Unknown]
  - Facial asymmetry [Unknown]
  - VIIth nerve paralysis [Unknown]
  - Facial paresis [Unknown]
  - Fall [Unknown]
  - Limb asymmetry [Unknown]
  - Muscle twitching [Unknown]
  - Neck pain [Unknown]
  - Pupillary reflex impaired [Unknown]
  - Muscle rigidity [Unknown]
  - Convulsion [Unknown]
  - Snoring [Unknown]
  - Speech disorder [Unknown]
  - Hypertonia [Unknown]
  - Micturition urgency [Unknown]
  - Visual field defect [Unknown]
  - Hemiparesis [Unknown]
  - Vomiting [Unknown]
  - Headache [Unknown]
  - Cerebrovascular accident [Unknown]
